FAERS Safety Report 5867492-2 (Version None)
Quarter: 2008Q3

REPORT INFORMATION
  Report Type: 
  Country: None (occurrence: None)
  Receive Date: 20080902
  Receipt Date: 20080827
  Transmission Date: 20090109
  Serious: Yes (Other)
  Sender: FDA-Public Use
  Company Number: LU-ABBOTT-08P-098-0472731-00

PATIENT
  Sex: Female

DRUGS (1)
  1. REDUCTIL [Suspect]
     Indication: WEIGHT CONTROL

REACTIONS (1)
  - DEEP VEIN THROMBOSIS [None]
